FAERS Safety Report 5677031-7 (Version None)
Quarter: 2008Q1

REPORT INFORMATION
  Report Type: 
  Country: None (occurrence: None)
  Receive Date: 20080324
  Receipt Date: 20080317
  Transmission Date: 20080703
  Serious: Yes (Hospitalization)
  Sender: FDA-Public Use
  Company Number: FR-AVENTIS-200811030FR

PATIENT
  Age: 84 Year
  Sex: Female

DRUGS (9)
  1. LASILIX                            /00032601/ [Suspect]
     Indication: OEDEMA PERIPHERAL
     Route: 048
     Dates: start: 20080214, end: 20080224
  2. NIFLURIL                           /00224001/ [Suspect]
     Indication: ARTHRALGIA
     Route: 048
     Dates: start: 20080214, end: 20080224
  3. DIALGIREX [Suspect]
     Indication: DRUG USE FOR UNKNOWN INDICATION
     Dosage: DOSE: 60/800
     Route: 048
     Dates: end: 20080224
  4. COTAREG [Concomitant]
     Indication: HYPERTENSION
     Dosage: DOSE: 160/25
     Route: 048
     Dates: end: 20080224
  5. OMEPRAZOLE [Concomitant]
     Indication: DRUG USE FOR UNKNOWN INDICATION
     Route: 048
  6. KARDEGIC                           /00002703/ [Concomitant]
     Indication: DRUG USE FOR UNKNOWN INDICATION
  7. URAPIDIL [Concomitant]
     Indication: DRUG USE FOR UNKNOWN INDICATION
  8. HEXAQUINE [Concomitant]
     Indication: DRUG USE FOR UNKNOWN INDICATION
  9. ALLOPURINOL [Concomitant]
     Indication: DRUG USE FOR UNKNOWN INDICATION
     Route: 048

REACTIONS (2)
  - DRUG INTERACTION [None]
  - DRUG TOXICITY [None]
